FAERS Safety Report 9674650 (Version 2)
Quarter: 2013Q4

REPORT INFORMATION
  Report Type: Spontaneous
  Country: FR (occurrence: FR)
  Receive Date: 20131107
  Receipt Date: 20131107
  Transmission Date: 20140711
  Serious: Yes (Other)
  Sender: FDA-Public Use
  Company Number: FR-JNJFOC-20131008781

PATIENT
  Age: 15 Year
  Sex: Male

DRUGS (1)
  1. CONCERTA [Suspect]
     Indication: PSYCHOMOTOR HYPERACTIVITY
     Dosage: SINCE 3 YEARS
     Route: 048

REACTIONS (3)
  - Malaise [Recovered/Resolved]
  - Drug ineffective [Recovered/Resolved]
  - Dysgeusia [Recovered/Resolved]
